FAERS Safety Report 9592531 (Version 1)
Quarter: 2013Q4

REPORT INFORMATION
  Report Type: Spontaneous
  Country: DK (occurrence: DK)
  Receive Date: 20131004
  Receipt Date: 20131004
  Transmission Date: 20140711
  Serious: Yes (Other)
  Sender: FDA-Public Use
  Company Number: DK-JNJFOC-20130917624

PATIENT
  Sex: Female

DRUGS (2)
  1. REMICADE [Suspect]
     Indication: RHEUMATOID ARTHRITIS
     Route: 042
     Dates: end: 2010
  2. VIOXX [Suspect]
     Indication: PRODUCT USED FOR UNKNOWN INDICATION
     Route: 065

REACTIONS (9)
  - Eye disorder [Unknown]
  - Visual impairment [Unknown]
  - Neuritis [Unknown]
  - Thrombosis [Unknown]
  - Weight decreased [Unknown]
  - Oedema peripheral [Unknown]
  - Skin disorder [Unknown]
  - Alopecia [Unknown]
  - Dry eye [Unknown]
